FAERS Safety Report 14643866 (Version 1)
Quarter: 2018Q1

REPORT INFORMATION
  Report Type: Spontaneous
  Country: US (occurrence: US)
  Receive Date: 20180315
  Receipt Date: 20180315
  Transmission Date: 20180509
  Serious: Yes (Life-Threatening)
  Sender: FDA-Public Use
  Company Number: US-MERZ NORTH AMERICA, INC.-18MRZ-00122

PATIENT
  Sex: Female

DRUGS (2)
  1. ASCLERA [Suspect]
     Active Substance: POLIDOCANOL
     Indication: VARICOSE VEIN
     Dosage: 4.8ML
     Route: 042
     Dates: start: 20180119, end: 20180119
  2. ASCLERA [Suspect]
     Active Substance: POLIDOCANOL
     Dosage: 4.2ML
     Route: 042
     Dates: start: 20180227, end: 20180227

REACTIONS (3)
  - Pharyngeal oedema [Unknown]
  - Rash generalised [Unknown]
  - Hypersensitivity [Unknown]
